FAERS Safety Report 5373493-3 (Version None)
Quarter: 2007Q2

REPORT INFORMATION
  Report Type: 
  Country: None (occurrence: None)
  Receive Date: 20070628
  Receipt Date: 20070614
  Transmission Date: 20071010
  Serious: Yes (Death, Hospitalization)
  Sender: FDA-Public Use
  Company Number: FR-GENENTECH-243004

PATIENT
  Sex: Female
  Weight: 63.991 kg

DRUGS (2)
  1. BEVACIZUMAB [Suspect]
     Indication: BREAST CANCER METASTATIC
     Dosage: 960 MG, Q3W
     Dates: start: 20061023
  2. MORPHINE [Concomitant]
     Indication: DRUG USE FOR UNKNOWN INDICATION
     Dates: start: 20060915

REACTIONS (3)
  - IMPAIRED HEALING [None]
  - PNEUMOCEPHALUS [None]
  - WOUND COMPLICATION [None]
